FAERS Safety Report 7480382-7 (Version None)
Quarter: 2011Q2

REPORT INFORMATION
  Report Type: 
  Country: None (occurrence: None)
  Receive Date: 20110512
  Receipt Date: 20110512
  Transmission Date: 20111010
  Serious: Yes (Hospitalization)
  Sender: FDA-Public Use
  Company Number: None

PATIENT
  Age: 87 Year
  Sex: Male
  Weight: 63 kg

DRUGS (1)
  1. CARBIDOPA AND LEVODOPA [Suspect]
     Indication: TREMOR
     Dosage: 1 TAB TID PO
     Route: 048
     Dates: start: 20110106, end: 20110203

REACTIONS (5)
  - THROMBOCYTOPENIA [None]
  - STOMATITIS [None]
  - HAEMORRHAGE [None]
  - EPISTAXIS [None]
  - RASH [None]
